FAERS Safety Report 18180042 (Version 1)
Quarter: 2020Q3

REPORT INFORMATION
  Report Type: Report from Study
  Country: US (occurrence: US)
  Receive Date: 20200821
  Receipt Date: 20200821
  Transmission Date: 20201103
  Serious: Yes (Death, Life-Threatening, Hospitalization, Other)
  Sender: FDA-Public Use
  Company Number: US-EMD SERONO-9125572

PATIENT
  Age: 64 Year
  Sex: Male
  Weight: 86 kg

DRUGS (5)
  1. IBUPROFEN. [Concomitant]
     Active Substance: IBUPROFEN
     Indication: CHILLS
  2. REBIF [Suspect]
     Active Substance: INTERFERON BETA-1A
     Indication: MULTIPLE SCLEROSIS
     Dosage: REBIF PREFILLED SYRINGE
     Route: 058
     Dates: start: 20030611, end: 201911
  3. LOSARTAN. [Concomitant]
     Active Substance: LOSARTAN
     Indication: HYPERTENSION
     Dosage: 100 (UNIT UNSPEECIFIED)
     Route: 048
  4. PRAMIPEXOLE. [Concomitant]
     Active Substance: PRAMIPEXOLE
     Indication: RESTLESS LEGS SYNDROME
     Dosage: 0.25 (UNIT UNSPECIFIED)
     Route: 048
  5. ZOCOR [Concomitant]
     Active Substance: SIMVASTATIN
     Indication: BLOOD CHOLESTEROL INCREASED
     Dosage: 20 (UNIT UNSPECIFIED)

REACTIONS (11)
  - Metabolic acidosis [Fatal]
  - Subdural haematoma [Fatal]
  - Arthralgia [Unknown]
  - Shock haemorrhagic [Fatal]
  - Bone marrow disorder [Unknown]
  - Multiple sclerosis [Unknown]
  - Stent placement [Unknown]
  - Blood magnesium increased [Recovered/Resolved]
  - Blood potassium increased [Recovered/Resolved]
  - Pancreatic carcinoma [Not Recovered/Not Resolved]
  - Metastases to lymph nodes [Unknown]

NARRATIVE: CASE EVENT DATE: 2016
